FAERS Safety Report 4337277-7 (Version None)
Quarter: 2004Q2

REPORT INFORMATION
  Report Type: 
  Country: None (occurrence: None)
  Receive Date: 20040413
  Receipt Date: 20040402
  Transmission Date: 20050107
  Serious: Yes (Hospitalization, Other)
  Sender: FDA-Public Use
  Company Number: US-JNJFOC-20031001040

PATIENT
  Sex: Female
  Weight: 88 kg

DRUGS (10)
  1. REMICADE [Suspect]
     Indication: DRUG USE FOR UNKNOWN INDICATION
     Route: 042
  2. METHOTREXATE [Concomitant]
  3. PREDNISONE [Concomitant]
  4. DARVOCET [Concomitant]
  5. DARVOCET [Concomitant]
  6. FOLIC ACID [Concomitant]
  7. FERROUS GLUCONATE [Concomitant]
  8. ELAVIL [Concomitant]
  9. CATAPRES [Concomitant]
  10. EFFEXOR [Concomitant]

REACTIONS (23)
  - ABDOMINAL DISCOMFORT [None]
  - ACUTE PULMONARY HISTOPLASMOSIS [None]
  - ALANINE AMINOTRANSFERASE INCREASED [None]
  - ASPARTATE AMINOTRANSFERASE INCREASED [None]
  - ASTHENIA [None]
  - BLOOD ALKALINE PHOSPHATASE INCREASED [None]
  - BLOOD BILIRUBIN INCREASED [None]
  - BLOOD CREATININE INCREASED [None]
  - COUGH [None]
  - EMPYEMA [None]
  - EPSTEIN-BARR VIRUS INFECTION [None]
  - HISTOPLASMOSIS DISSEMINATED [None]
  - HYPONATRAEMIA [None]
  - HYPOXIA [None]
  - LIVER FUNCTION TEST ABNORMAL [None]
  - MARKEDLY REDUCED DIETARY INTAKE [None]
  - NIGHT SWEATS [None]
  - PANCYTOPENIA [None]
  - PLEURAL EFFUSION [None]
  - PNEUMONIA PRIMARY ATYPICAL [None]
  - PYREXIA [None]
  - RESPIRATORY DISTRESS [None]
  - URINE BILIRUBIN INCREASED [None]
